FAERS Safety Report 8280705-5 (Version None)
Quarter: 2012Q2

REPORT INFORMATION
  Report Type: 
  Country: None (occurrence: None)
  Receive Date: 20120412
  Receipt Date: 20120109
  Transmission Date: 20120825
  Serious: Yes (Other)
  Sender: FDA-Public Use
  Company Number: US-ASTRAZENECA-2011SE46083

PATIENT
  Age: 45 Year
  Sex: Female

DRUGS (11)
  1. ABILIFY [Concomitant]
  2. NEXIUM [Suspect]
     Indication: GASTROOESOPHAGEAL REFLUX DISEASE
     Route: 048
  3. HYDROTHYCHLORIZIDE [Concomitant]
  4. NEURONTIN [Concomitant]
  5. LYRICE [Concomitant]
  6. ZOCOR [Concomitant]
  7. CYMBALTA [Concomitant]
  8. REMERON [Concomitant]
  9. OMEPRAZOLE [Suspect]
     Route: 048
  10. ZYRTEC [Concomitant]
  11. HYDROXYZINE HCL [Concomitant]

REACTIONS (6)
  - ANKLE FRACTURE [None]
  - TYPE 2 DIABETES MELLITUS [None]
  - DRUG DOSE OMISSION [None]
  - MALAISE [None]
  - VOMITING [None]
  - DYSPEPSIA [None]
